FAERS Safety Report 15187268 (Version 1)
Quarter: 2018Q3

REPORT INFORMATION
  Report Type: Report from Study
  Country: US (occurrence: US)
  Receive Date: 20180723
  Receipt Date: 20180723
  Transmission Date: 20181010
  Serious: No
  Sender: FDA-Public Use
  Company Number: US-EXELIXIS-CABO-18011950

PATIENT
  Sex: Female

DRUGS (4)
  1. MULTIVITAMINS [Concomitant]
     Active Substance: VITAMINS
  2. GABAPENTIN. [Concomitant]
     Active Substance: GABAPENTIN
  3. XGEVA [Concomitant]
     Active Substance: DENOSUMAB
  4. CABOMETYX [Suspect]
     Active Substance: CABOZANTINIB S-MALATE
     Indication: RENAL CANCER
     Dosage: 60 MG, QD
     Route: 048
     Dates: start: 20171123

REACTIONS (4)
  - Dysgeusia [Unknown]
  - Dry skin [Unknown]
  - Oral discomfort [Unknown]
  - Constipation [Unknown]
